FAERS Safety Report 15088305 (Version 1)
Quarter: 2018Q2

REPORT INFORMATION
  Report Type: Report from Study
  Country: None (occurrence: NL)
  Receive Date: 20180629
  Receipt Date: 20180629
  Transmission Date: 20180711
  Serious: Yes (Hospitalization, Other)
  Sender: FDA-Public Use
  Company Number: NL-ABBVIE-18K-114-2398255-00

PATIENT
  Age: 76 Year
  Sex: Male

DRUGS (2)
  1. DUODOPA [Suspect]
     Active Substance: CARBIDOPA\LEVODOPA
     Indication: PARKINSON^S DISEASE
     Dosage: MD 9.0?CD 4.0?ED 2
     Route: 050
     Dates: start: 20161107, end: 2018
  2. DUODOPA [Suspect]
     Active Substance: CARBIDOPA\LEVODOPA
     Dosage: MD 8.0 ML?CD 3.8 ML?ED 1.5
     Route: 050
     Dates: start: 201806

REACTIONS (7)
  - Intentional medical device removal by patient [Recovered/Resolved]
  - Device dislocation [Unknown]
  - Deep brain stimulation [Unknown]
  - Intentional medical device removal by patient [Recovered/Resolved]
  - Post procedural stroke [Not Recovered/Not Resolved]
  - Dyskinesia [Not Recovered/Not Resolved]
  - Device connection issue [Unknown]

NARRATIVE: CASE EVENT DATE: 2018
